FAERS Safety Report 7410018-2 (Version None)
Quarter: 2011Q2

REPORT INFORMATION
  Report Type: 
  Country: None (occurrence: None)
  Receive Date: 20110412
  Receipt Date: 20110308
  Transmission Date: 20111010
  Serious: Yes (Hospitalization, Other)
  Sender: FDA-Public Use
  Company Number: PHHY2010US67424

PATIENT
  Sex: Male
  Weight: 195 kg

DRUGS (20)
  1. ZOVIRAX [Concomitant]
     Dosage: 400 MG, UNK
     Route: 048
  2. OXYCODONE [Concomitant]
     Indication: SCIATICA
     Dosage: 1 OR 2 TAB AT NIGHT
     Route: 048
     Dates: start: 20100317
  3. INDOMETHACIN [Concomitant]
     Dosage: 50 MG, TID
     Dates: start: 20100709
  4. EXJADE [Suspect]
     Indication: HAEMATOPOIETIC NEOPLASM
     Dosage: 500 MG
     Route: 048
  5. DOCUSATE [Concomitant]
     Dosage: 250 MG, BID
     Dates: start: 20100304
  6. MEDROL [Concomitant]
     Dates: start: 20101004
  7. MIRTAZAPINE [Concomitant]
     Dosage: 15 MG
  8. HUMALOG [Concomitant]
     Dosage: 15 UNITS BEFORE EVENING MEAL
  9. PIOGLITAZONE [Concomitant]
     Dosage: 30 MG,
     Route: 048
     Dates: start: 20100331
  10. VISTARIL [Concomitant]
     Dosage: THREE TIMES DAILY
     Dates: start: 20100910
  11. PROCHLORPERAZINE TAB [Concomitant]
     Indication: NAUSEA
     Dosage: 10 MG
     Dates: start: 20100409
  12. DR PILLOWS SOLUTION 3 [Concomitant]
     Dosage: 1 OR 2 TSP
     Route: 048
     Dates: start: 20100520
  13. HYZAAR [Concomitant]
     Dosage: HALF TABLET DAILY
     Route: 048
  14. ALLOPURINOL [Concomitant]
     Dosage: 300 MG DAILY
     Dates: start: 20100118
  15. EXJADE [Suspect]
     Indication: IRON OVERLOAD
     Dosage: 1000 MG, QD
     Route: 048
     Dates: start: 20100820, end: 20100908
  16. SIMVASTATIN [Concomitant]
     Dosage: 40 MG
     Route: 048
     Dates: start: 20090210
  17. DIFLUCAN [Concomitant]
     Dosage: 200 MG, UNK
     Route: 048
     Dates: start: 20100318
  18. LEVEMIR [Concomitant]
     Dosage: 30 UNITS AT BED TIME
     Dates: start: 20100407
  19. HUMALOG [Concomitant]
     Dosage: 20 UNITS BEFOR MORNING MEAL
     Route: 058
  20. LANTUS [Concomitant]
     Dosage: 30 UNITS AT BED TIME
     Dates: start: 20100308

REACTIONS (4)
  - INFECTION [None]
  - INSOMNIA [None]
  - RASH PRURITIC [None]
  - ACTIVITIES OF DAILY LIVING IMPAIRED [None]
